FAERS Safety Report 22021933 (Version 1)
Quarter: 2023Q1

REPORT INFORMATION
  Report Type: Spontaneous
  Country: US (occurrence: None)
  Receive Date: 20230219
  Receipt Date: 20230219
  Transmission Date: 20230418
  Serious: Yes (Disabling, Other)
  Sender: FDA-Public Use
  Company Number: None

PATIENT
  Age: 69 Year
  Sex: Male
  Weight: 65.7 kg

DRUGS (4)
  1. FLOMAX [Suspect]
     Active Substance: TAMSULOSIN HYDROCHLORIDE
     Indication: Prostatomegaly
     Dosage: OTHER QUANTITY : 1 CAPSULE(S);?FREQUENCY : DAILY;?
     Route: 048
     Dates: start: 20230105, end: 20230108
  2. hydrocodone-acetaminophe [Concomitant]
  3. VITAMINS [Concomitant]
     Active Substance: VITAMINS
  4. COENZYME Q10 [Concomitant]
     Active Substance: DIETARY SUPPLEMENT\UBIDECARENONE

REACTIONS (8)
  - Feeling abnormal [None]
  - Respiratory disorder [None]
  - Abdominal pain upper [None]
  - Respiratory arrest [None]
  - Mobility decreased [None]
  - Gait inability [None]
  - Swelling face [None]
  - Muscle tightness [None]
